FAERS Safety Report 7951129-2 (Version None)
Quarter: 2011Q4

REPORT INFORMATION
  Report Type: 
  Country: None (occurrence: None)
  Receive Date: 20111201
  Receipt Date: 20111128
  Transmission Date: 20120403
  Serious: Yes (Death, Hospitalization, Other)
  Sender: FDA-Public Use
  Company Number: US-AMGEN-USASP2011031598

PATIENT
  Age: 62 Year
  Sex: Male

DRUGS (15)
  1. GABAPENTIN [Concomitant]
  2. LANTUS [Concomitant]
     Dosage: UNK
  3. FENTANYL [Concomitant]
  4. LIPITOR [Concomitant]
  5. NPLATE [Suspect]
     Dosage: UNK
  6. CEFEPIME [Concomitant]
  7. PRAZOSIN HCL [Concomitant]
  8. DOCUSATE [Concomitant]
  9. NOVOLOG [Concomitant]
  10. ASPIRIN [Concomitant]
     Dosage: 1 MG, UNK
  11. CORTICOSTEROIDS [Concomitant]
     Indication: IDIOPATHIC THROMBOCYTOPENIC PURPURA
  12. IVIGLOB-EX [Concomitant]
     Indication: IDIOPATHIC THROMBOCYTOPENIC PURPURA
  13. LABETALOL HCL [Concomitant]
  14. NPLATE [Suspect]
     Indication: IDIOPATHIC THROMBOCYTOPENIC PURPURA
     Dosage: 10 MUG/KG, UNK
     Dates: start: 20110504, end: 20110706
  15. CODEINE SULFATE [Concomitant]
     Dosage: UNK

REACTIONS (6)
  - WEIGHT INCREASED [None]
  - HAEMORRHAGE [None]
  - DEATH [None]
  - THROMBOTIC STROKE [None]
  - THERAPEUTIC RESPONSE DECREASED [None]
  - WHITE BLOOD CELL COUNT INCREASED [None]
